FAERS Safety Report 17766300 (Version 1)
Quarter: 2020Q2

REPORT INFORMATION
  Report Type: Spontaneous
  Country: US (occurrence: US)
  Receive Date: 20200511
  Receipt Date: 20200511
  Transmission Date: 20200714
  Serious: Yes (Other)
  Sender: FDA-Public Use
  Company Number: None

PATIENT
  Sex: Female
  Weight: 84.6 kg

DRUGS (31)
  1. CYCLOBENZAPRINE. [Concomitant]
     Active Substance: CYCLOBENZAPRINE
  2. TRIAMCINOLONE CREAM [Concomitant]
     Active Substance: TRIAMCINOLONE
  3. MELATONIN [Concomitant]
     Active Substance: MELATONIN
  4. FLUOXETINE [Concomitant]
     Active Substance: FLUOXETINE HYDROCHLORIDE
  5. PRESERVISION AREDS-2 [Concomitant]
  6. ALPRAZOLAM. [Concomitant]
     Active Substance: ALPRAZOLAM
  7. HYDROCORTISONE OINTMENT [Concomitant]
     Active Substance: HYDROCORTISONE
  8. POLYETHYLENE GLYCOL [Concomitant]
     Active Substance: POLYETHYLENE GLYCOLS
  9. BEANO [Concomitant]
     Active Substance: ASPERGILLUS NIGER .ALPHA.-GALACTOSIDASE
  10. MASTECTOMY BRA AND FORMS [Concomitant]
  11. ONDANSETRON [Concomitant]
     Active Substance: ONDANSETRON
  12. SIMETHICONE (DIMETHICONE) [Concomitant]
     Active Substance: DIMETHICONE
  13. VITAMIN B COMPLEX [Concomitant]
     Active Substance: CYANOCOBALAMIN\DEXPANTHENOL\NIACINAMIDE\PYRIDOXINE HYDROCHLORIDE\RIBOFLAVIN 5^-PHOSPHATE SODIUM\THIAMINE HYDROCHLORIDE\VITAMIN B COMPLEX
  14. IMIQUIMOD. [Concomitant]
     Active Substance: IMIQUIMOD
  15. POTASSIUM CHLORIDE. [Concomitant]
     Active Substance: POTASSIUM CHLORIDE
  16. CINNAMON CAPSULES [Concomitant]
  17. VITAMIN D [Concomitant]
     Active Substance: VITAMIN D NOS
  18. FAMOTIDINE. [Suspect]
     Active Substance: FAMOTIDINE
     Indication: GASTROOESOPHAGEAL REFLUX DISEASE
     Dosage: ?          QUANTITY:1 TABLET(S);?
  19. BISACODYL. [Concomitant]
     Active Substance: BISACODYL
  20. FLECANIDE [Concomitant]
     Active Substance: FLECAINIDE
  21. NEOMYCIN-POLYMXIN-HYDROCORTISIONE [Concomitant]
  22. RANITIDINE. [Concomitant]
     Active Substance: RANITIDINE
  23. SM NASAL SPRAY [Concomitant]
  24. DILITAZEM XR [Concomitant]
  25. FLUOCINONIDE OINTMENT [Concomitant]
     Active Substance: FLUOCINONIDE
  26. MAGNESIUM CITRATE. [Concomitant]
     Active Substance: MAGNESIUM CITRATE
  27. TYLENOL [Concomitant]
     Active Substance: ACETAMINOPHEN
  28. BUPROPION. [Concomitant]
     Active Substance: BUPROPION
  29. WARFARIN [Concomitant]
     Active Substance: WARFARIN
  30. ZOSTAVAX VACCINE [Concomitant]
  31. DOXYLAMINE SUCCINATE. [Concomitant]
     Active Substance: DOXYLAMINE SUCCINATE

REACTIONS (6)
  - Abdominal distension [None]
  - Abdominal discomfort [None]
  - Incorrect dose administered [None]
  - Malaise [None]
  - Anger [None]
  - Hostility [None]
